FAERS Safety Report 14522032 (Version 2)
Quarter: 2018Q1

REPORT INFORMATION
  Report Type: Spontaneous
  Country: JP (occurrence: JP)
  Receive Date: 20180212
  Receipt Date: 20180212
  Transmission Date: 20180509
  Serious: Yes (Other)
  Sender: FDA-Public Use
  Company Number: JP-BAUSCH-BL-2018-003079

PATIENT
  Age: 9 Decade
  Sex: Male

DRUGS (4)
  1. ISOSORBIDE. [Concomitant]
     Active Substance: ISOSORBIDE
     Indication: PRODUCT USED FOR UNKNOWN INDICATION
  2. BRONUCK OPHTHALMIC SOLUTION 0.1% [Suspect]
     Active Substance: BROMFENAC SODIUM
     Indication: PRODUCT USED FOR UNKNOWN INDICATION
     Route: 047
  3. AMLODIN [Concomitant]
     Active Substance: AMLODIPINE BESYLATE
     Indication: PRODUCT USED FOR UNKNOWN INDICATION
  4. CLOPIDOGREL [Concomitant]
     Active Substance: CLOPIDOGREL BISULFATE
     Indication: PRODUCT USED FOR UNKNOWN INDICATION

REACTIONS (4)
  - Haematochezia [Unknown]
  - Abdominal pain [Unknown]
  - Faeces soft [Unknown]
  - Diarrhoea [Unknown]
